FAERS Safety Report 7630026-6 (Version None)
Quarter: 2011Q3

REPORT INFORMATION
  Report Type: 
  Country: None (occurrence: None)
  Receive Date: 20110722
  Receipt Date: 20110719
  Transmission Date: 20111222
  Serious: Yes (Death)
  Sender: FDA-Public Use
  Company Number: US-PFIZER INC-2011110559

PATIENT
  Age: 21 Year
  Sex: Male

DRUGS (2)
  1. XANAX [Suspect]
  2. OXYCODONE HYDROCHLORIDE [Suspect]

REACTIONS (1)
  - TOXICITY TO VARIOUS AGENTS [None]
